FAERS Safety Report 9787794 (Version 2)
Quarter: 2013Q4

REPORT INFORMATION
  Report Type: Spontaneous
  Country: US (occurrence: US)
  Receive Date: 20131230
  Receipt Date: 20131230
  Transmission Date: 20140711
  Serious: No
  Sender: FDA-Public Use
  Company Number: US-PFIZER INC-2013369485

PATIENT
  Age: 63 Year
  Sex: Female

DRUGS (3)
  1. CHANTIX [Suspect]
     Indication: SMOKING CESSATION THERAPY
     Dosage: 0.5 MG, DAILY
     Dates: start: 20131224
  2. ASPIRIN [Concomitant]
     Indication: ARTERIOSCLEROSIS
     Dosage: 325 MG, DAILY
  3. SUPER MAXI B-COMPLEX [Concomitant]
     Indication: RENAL FAILURE CHRONIC
     Dosage: UNK

REACTIONS (3)
  - Fatigue [Not Recovered/Not Resolved]
  - Tobacco user [Unknown]
  - Somnolence [Unknown]
